FAERS Safety Report 8172837-7 (Version None)
Quarter: 2012Q1

REPORT INFORMATION
  Report Type: 
  Country: None (occurrence: None)
  Receive Date: 20120229
  Receipt Date: 20120222
  Transmission Date: 20120608
  Serious: Yes (Other)
  Sender: FDA-Public Use
  Company Number: US-COVIDIEN/TYCO HEALTHCARE/MALLINCKRODT-T201200683

PATIENT
  Age: 12 Year
  Sex: Female
  Weight: 40 kg

DRUGS (3)
  1. SODIUM IODIDE I 131 [Suspect]
     Indication: HYPERTHYROIDISM
     Dosage: 11.1 MCI
  2. ATENOLOL [Concomitant]
     Indication: TACHYCARDIA
     Dosage: 25 MG, QD
  3. PREDNISONE [Concomitant]
     Indication: ASTHMA
     Dosage: 10 MG, QD
     Route: 048

REACTIONS (1)
  - HYPOCALCAEMIA [None]
